FAERS Safety Report 5848529-3 (Version None)
Quarter: 2008Q3

REPORT INFORMATION
  Report Type: 
  Country: None (occurrence: None)
  Receive Date: 20080818
  Receipt Date: 20080806
  Transmission Date: 20090109
  Serious: Yes (Other)
  Sender: FDA-Public Use
  Company Number: CA-ELI_LILLY_AND_COMPANY-CA200807002595

PATIENT
  Sex: Male

DRUGS (6)
  1. ALIMTA [Suspect]
     Indication: MESOTHELIOMA
     Dosage: 975 MG Q 3 WKS, 39ML IN NS 100
     Route: 042
     Dates: start: 20080609
  2. CISPLATIN [Concomitant]
     Dosage: 146 MG Q 3 WKS, OTHER
  3. SODIUM CHLORIDE 0.9% [Concomitant]
     Dosage: 0.9 %, OTHER
     Route: 042
     Dates: start: 20080101
  4. FOLIC ACID [Concomitant]
     Indication: PREMEDICATION
     Dosage: UNK, DAILY (1/D)
     Route: 048
  5. VITAMIN B-12 [Concomitant]
     Indication: PREMEDICATION
     Dosage: UNK, MONTHLY (1/M)
  6. IRON SULFATETHIAMIN COMPOUND TAB [Concomitant]
     Indication: IRON DEFICIENCY ANAEMIA

REACTIONS (3)
  - HAEMATOCRIT DECREASED [None]
  - HAEMOGLOBIN DECREASED [None]
  - PLATELET COUNT INCREASED [None]
